FAERS Safety Report 18438431 (Version 1)
Quarter: 2020Q4

REPORT INFORMATION
  Report Type: Spontaneous
  Country: US (occurrence: US)
  Receive Date: 20201029
  Receipt Date: 20201029
  Transmission Date: 20210114
  Serious: Yes (Hospitalization, Other)
  Sender: FDA-Public Use
  Company Number: US-ADVANZ PHARMA-202010009740

PATIENT

DRUGS (2)
  1. HYDROXYCHLOROQUINE [Suspect]
     Active Substance: HYDROXYCHLOROQUINE
     Indication: COVID-19 PNEUMONIA
     Route: 065
  2. HYDROXYCHLOROQUINE [Suspect]
     Active Substance: HYDROXYCHLOROQUINE
     Indication: PRODUCT USE IN UNAPPROVED INDICATION

REACTIONS (7)
  - Delirium [Recovered/Resolved]
  - Methaemoglobinaemia [Recovered/Resolved]
  - Haemolysis [Recovered/Resolved]
  - Off label use [Recovered/Resolved]
  - Mental status changes [Recovered/Resolved]
  - Glucose-6-phosphate dehydrogenase deficiency [Recovered/Resolved]
  - Respiratory failure [Recovered/Resolved]
